FAERS Safety Report 5624692-4 (Version None)
Quarter: 2008Q1

REPORT INFORMATION
  Report Type: 
  Country: None (occurrence: None)
  Receive Date: 20080213
  Receipt Date: 20080208
  Transmission Date: 20080703
  Serious: Yes (Death, Life-Threatening, Hospitalization)
  Sender: FDA-Public Use
  Company Number: B0502360A

PATIENT
  Age: 91 Year
  Sex: Male
  Weight: 56 kg

DRUGS (4)
  1. ARIXTRA [Suspect]
     Dosage: 1.5MG PER DAY
     Route: 058
     Dates: start: 20071227, end: 20080107
  2. MODOPAR [Concomitant]
     Indication: PARKINSONISM
  3. VERAPAMIL [Concomitant]
  4. DUPHALAC [Concomitant]

REACTIONS (17)
  - ACUTE CORONARY SYNDROME [None]
  - ANAEMIA [None]
  - ARRHYTHMIA [None]
  - ATRIAL FIBRILLATION [None]
  - FAECALOMA [None]
  - GASTROINTESTINAL HAEMORRHAGE [None]
  - GASTROINTESTINAL OBSTRUCTION [None]
  - HYPOXIA [None]
  - LUNG INFECTION [None]
  - OXYGEN SATURATION DECREASED [None]
  - PROSTATITIS [None]
  - PULMONARY OEDEMA [None]
  - RALES [None]
  - RENAL FAILURE [None]
  - RESPIRATORY FAILURE [None]
  - SPUTUM PURULENT [None]
  - TACHYPNOEA [None]
